FAERS Safety Report 18086191 (Version 3)
Quarter: 2020Q3

REPORT INFORMATION
  Report Type: Report from Study
  Country: IT (occurrence: IT)
  Receive Date: 20200728
  Receipt Date: 20200814
  Transmission Date: 20201103
  Serious: Yes (Life-Threatening, Hospitalization, Other)
  Sender: FDA-Public Use
  Company Number: IT-TAKEDA-2020TUS032326

PATIENT
  Age: 64 Year
  Sex: Female

DRUGS (21)
  1. PONATINIB [Suspect]
     Active Substance: PONATINIB
     Indication: ACUTE LYMPHOCYTIC LEUKAEMIA
     Dosage: 30 MILLIGRAM, QD
     Route: 048
     Dates: start: 20190904, end: 20200709
  2. METHOTREXATE. [Suspect]
     Active Substance: METHOTREXATE
     Indication: ACUTE LYMPHOCYTIC LEUKAEMIA
     Dosage: 12.5 MILLIGRAM
     Route: 037
     Dates: start: 20190904, end: 20200227
  3. CYTARABINE. [Suspect]
     Active Substance: CYTARABINE
     Indication: ACUTE LYMPHOCYTIC LEUKAEMIA
     Dosage: 50 MILLIGRAM
     Route: 037
     Dates: start: 20190904, end: 20200227
  4. ONDANSETRON [Concomitant]
     Active Substance: ONDANSETRON
     Dosage: 16 MILLIGRAM, QOD
     Route: 042
     Dates: start: 20200111, end: 20200113
  5. DEXAMETHASONE. [Suspect]
     Active Substance: DEXAMETHASONE
     Indication: ACUTE LYMPHOCYTIC LEUKAEMIA
     Dosage: 4 MILLIGRAM
     Route: 037
     Dates: start: 20190904, end: 20200227
  6. ONDANSETRON [Concomitant]
     Active Substance: ONDANSETRON
     Indication: PROPHYLAXIS
     Dosage: 8 MILLIGRAM
     Route: 042
     Dates: start: 20190917, end: 20191219
  7. ONDANSETRON [Concomitant]
     Active Substance: ONDANSETRON
     Dosage: 16 MILLIGRAM, QOD
     Route: 042
     Dates: start: 20200313, end: 20200317
  8. ONDANSETRON [Concomitant]
     Active Substance: ONDANSETRON
     Dosage: 8 MILLIGRAM
     Route: 042
     Dates: start: 20200410, end: 20200410
  9. ONDANSETRON [Concomitant]
     Active Substance: ONDANSETRON
     Dosage: 8 MILLIGRAM
     Route: 042
     Dates: start: 20200605, end: 20200702
  10. CYTARABINE. [Suspect]
     Active Substance: CYTARABINE
     Dosage: 250 MILLIGRAM/SQ. METER
     Route: 042
     Dates: start: 20200110, end: 20200512
  11. VINCRISTINE [Suspect]
     Active Substance: VINCRISTINE
     Dosage: 1.4 MILLIGRAM/SQ. METER
     Route: 042
     Dates: start: 20191007, end: 20191021
  12. ONDANSETRON [Concomitant]
     Active Substance: ONDANSETRON
     Dosage: 8 MILLIGRAM
     Route: 042
     Dates: start: 20200213, end: 20200213
  13. METHOTREXATE. [Suspect]
     Active Substance: METHOTREXATE
     Dosage: 250 MILLIGRAM/SQ. METER
     Route: 042
     Dates: start: 20191204, end: 20200411
  14. VINCRISTINE [Suspect]
     Active Substance: VINCRISTINE
     Dosage: 0.7 MILLIGRAM/SQ. METER
     Route: 042
     Dates: start: 20200604, end: 20200702
  15. BIFRIZIDE [Concomitant]
     Active Substance: HYDROCHLOROTHIAZIDE
     Indication: HYPERTENSION
     Dosage: 30 MILLIGRAM, QD
     Route: 048
  16. NIVESTIM [Concomitant]
     Active Substance: FILGRASTIM
     Indication: NEUTROPENIA
     Dosage: UNK UNK, QD
     Route: 058
     Dates: start: 20200120
  17. ONDANSETRON [Concomitant]
     Active Substance: ONDANSETRON
     Dosage: 16 MILLIGRAM, QOD
     Route: 042
     Dates: start: 20200508, end: 20200512
  18. DEXAMETHASONE. [Suspect]
     Active Substance: DEXAMETHASONE
     Indication: ACUTE LYMPHOCYTIC LEUKAEMIA
     Dosage: 20 MILLIGRAM
     Route: 048
     Dates: start: 20190904, end: 20191118
  19. VINCRISTINE [Suspect]
     Active Substance: VINCRISTINE
     Indication: ACUTE LYMPHOCYTIC LEUKAEMIA
     Dosage: 1 MILLIGRAM/SQ. METER
     Route: 042
     Dates: start: 20190904, end: 20190917
  20. VINCRISTINE [Suspect]
     Active Substance: VINCRISTINE
     Dosage: 1 MILLIGRAM/SQ. METER
     Route: 042
     Dates: start: 20191104, end: 20191118
  21. PREDNISONE. [Suspect]
     Active Substance: PREDNISONE
     Indication: ACUTE LYMPHOCYTIC LEUKAEMIA
     Dosage: 100 MILLIGRAM
     Route: 048
     Dates: start: 20200604, end: 20200706

REACTIONS (1)
  - Cardiac failure [Recovered/Resolved]

NARRATIVE: CASE EVENT DATE: 20200723
